FAERS Safety Report 7608821-9 (Version None)
Quarter: 2011Q3

REPORT INFORMATION
  Report Type: 
  Country: None (occurrence: None)
  Receive Date: 20110714
  Receipt Date: 20110706
  Transmission Date: 20111222
  Serious: Yes (Hospitalization)
  Sender: FDA-Public Use
  Company Number: FR-AMGEN-KDC435604

PATIENT
  Age: 62 Year
  Sex: Female

DRUGS (4)
  1. EPIRUBICIN [Concomitant]
     Dosage: 160 MG, UNK
     Route: 042
     Dates: start: 20100720
  2. FLUOROURACIL [Concomitant]
     Dosage: 780 MG, UNK
     Route: 042
     Dates: start: 20100720
  3. PANITUMUMAB [Suspect]
     Indication: BREAST CANCER
     Dosage: 500 MG, UNK
     Route: 042
     Dates: start: 20100720
  4. CYCLOPHOSPHAMIDE [Concomitant]
     Dosage: 780 MG, UNK
     Route: 042
     Dates: start: 20100720

REACTIONS (1)
  - FEBRILE NEUTROPENIA [None]
